FAERS Safety Report 5653341-4 (Version None)
Quarter: 2008Q1

REPORT INFORMATION
  Report Type: 
  Country: None (occurrence: None)
  Receive Date: 20080306
  Receipt Date: 20080225
  Transmission Date: 20080703
  Serious: No
  Sender: FDA-Public Use
  Company Number: JP-MERCK-0709USA03841

PATIENT
  Age: 70 Year
  Sex: Female

DRUGS (4)
  1. ZETIA [Suspect]
     Indication: HYPERCHOLESTEROLAEMIA
     Route: 048
     Dates: start: 20070806, end: 20070903
  2. AMLODIPINE BESYLATE [Concomitant]
     Indication: HYPERCHOLESTEROLAEMIA
     Route: 065
     Dates: start: 20000901
  3. PRAVASTATIN SODIUM [Concomitant]
     Route: 065
     Dates: start: 20060501
  4. TIZANIDINE HYDROCHLORIDE [Suspect]
     Indication: SCIATICA
     Route: 048
     Dates: start: 20070806, end: 20071004

REACTIONS (1)
  - LIVER DISORDER [None]
